FAERS Safety Report 4524569-1 (Version None)
Quarter: 2004Q4

REPORT INFORMATION
  Report Type: 
  Country: None (occurrence: None)
  Receive Date: 20041117
  Receipt Date: 20040823
  Transmission Date: 20050328
  Serious: Yes (Disabling, Other)
  Sender: FDA-Public Use
  Company Number: US-JNJFOC-20040601014

PATIENT
  Age: 72 Year
  Sex: Male
  Weight: 111.5849 kg

DRUGS (1)
  1. LEVAQUIN [Suspect]
     Indication: BRONCHITIS
     Dosage: 750 MG
     Dates: start: 20040408, end: 20040410

REACTIONS (1)
  - TENDON RUPTURE [None]
